FAERS Safety Report 17360366 (Version 1)
Quarter: 2020Q1

REPORT INFORMATION
  Report Type: Spontaneous
  Country: US (occurrence: US)
  Receive Date: 20200131
  Receipt Date: 20200131
  Transmission Date: 20200409
  Serious: No
  Sender: FDA-Public Use
  Company Number: None

PATIENT
  Age: 63 Year
  Sex: Female
  Weight: 66.15 kg

DRUGS (3)
  1. MULTIVITAMIN [Concomitant]
     Active Substance: VITAMINS
  2. VITAMIN D [Concomitant]
     Active Substance: VITAMIN D NOS
  3. EYLEA [Suspect]
     Active Substance: AFLIBERCEPT
     Indication: MACULAR OEDEMA
     Route: 047
     Dates: start: 20191205

REACTIONS (3)
  - Eye pain [None]
  - Injection site erythema [None]
  - Scleritis [None]

NARRATIVE: CASE EVENT DATE: 20191205
